FAERS Safety Report 23684108 (Version 3)
Quarter: 2025Q1

REPORT INFORMATION
  Report Type: Spontaneous
  Country: CA (occurrence: CA)
  Receive Date: 20240328
  Receipt Date: 20250116
  Transmission Date: 20250408
  Serious: Yes (Death, Hospitalization, Other)
  Sender: PFIZER
  Company Number: CA-PFIZER INC-202300283429

PATIENT
  Age: 74 Year
  Sex: Male
  Weight: 78 kg

DRUGS (14)
  1. VYNDAQEL [Suspect]
     Active Substance: TAFAMIDIS MEGLUMINE
     Indication: Cardiac amyloidosis
     Dosage: 80 MG, 1X/DAY
     Route: 048
     Dates: start: 20230627, end: 20240826
  2. VYNDAQEL [Suspect]
     Active Substance: TAFAMIDIS MEGLUMINE
     Indication: Amyloidosis
  3. CARVEDILOL [Concomitant]
     Active Substance: CARVEDILOL
     Indication: Cardiac failure congestive
     Dosage: 25 MG, DAILY
     Route: 048
  4. FUROSEMIDE [Concomitant]
     Active Substance: FUROSEMIDE
     Indication: Cardiac failure congestive
     Dosage: 120 MG, 2X/DAY
     Route: 048
  5. ROSUVASTATIN [Concomitant]
     Active Substance: ROSUVASTATIN
     Indication: Hyperlipidaemia
     Dosage: 20 MG, DAILY
     Route: 048
  6. SACUBITRIL [Concomitant]
     Active Substance: SACUBITRIL
  7. IVABRADINE [Concomitant]
     Active Substance: IVABRADINE
     Indication: Cardiac failure congestive
     Dosage: 5 MG, 2X/DAY
     Route: 048
  8. METOLAZONE [Concomitant]
     Active Substance: METOLAZONE
     Indication: Cardiac failure congestive
     Dosage: 2.5 MG, DAILY
     Route: 048
  9. EMPAGLIFLOZIN [Concomitant]
     Active Substance: EMPAGLIFLOZIN
     Indication: Cardiac failure congestive
     Dosage: 25 MG, DAILY
     Route: 048
  10. EMPAGLIFLOZIN [Concomitant]
     Active Substance: EMPAGLIFLOZIN
     Indication: Diabetes mellitus
  11. ENTRESTO [Concomitant]
     Active Substance: SACUBITRIL\VALSARTAN
     Indication: Cardiac failure congestive
     Dosage: 1 DF, 2X/DAY
     Route: 048
  12. METFORMIN [Concomitant]
     Active Substance: METFORMIN HYDROCHLORIDE
     Indication: Diabetes mellitus
     Dosage: 500 MG, 2X/DAY
     Route: 048
  13. EPLERENONE [Concomitant]
     Active Substance: EPLERENONE
     Indication: Cardiac failure congestive
     Dosage: 25 MG, DAILY
     Route: 048
  14. SEMAGLUTIDE [Concomitant]
     Active Substance: SEMAGLUTIDE
     Indication: Diabetes mellitus
     Dosage: 0.25 MG, WEEKLY
     Route: 058

REACTIONS (19)
  - Cardiac failure [Fatal]
  - Cardiac failure chronic [Not Recovered/Not Resolved]
  - Amyloidosis [Not Recovered/Not Resolved]
  - Disease progression [Unknown]
  - Cardiac failure congestive [Unknown]
  - Cardiorenal syndrome [Unknown]
  - Ascites [Unknown]
  - Renal impairment [Unknown]
  - Atrial fibrillation [Unknown]
  - Heart rate increased [Not Recovered/Not Resolved]
  - Cardiac disorder [Unknown]
  - Dyspnoea [Unknown]
  - Hypertension [Unknown]
  - Condition aggravated [Unknown]
  - Oedema peripheral [Unknown]
  - Vasodilatation [Unknown]
  - Asthenia [Unknown]
  - Dyspnoea exertional [Unknown]
  - Pleural effusion [Recovering/Resolving]

NARRATIVE: CASE EVENT DATE: 20230101
